FAERS Safety Report 7642484-1 (Version None)
Quarter: 2011Q3

REPORT INFORMATION
  Report Type: 
  Country: None (occurrence: None)
  Receive Date: 20110728
  Receipt Date: 20110722
  Transmission Date: 20111222
  Serious: Yes (Hospitalization)
  Sender: FDA-Public Use
  Company Number: US-ABBOTT-11P-163-0841444-00

PATIENT
  Sex: Male

DRUGS (2)
  1. PROBIOTIC [Concomitant]
     Indication: PRODUCT USED FOR UNKNOWN INDICATION
  2. HUMIRA [Suspect]
     Indication: PSORIASIS
     Dates: start: 20110101, end: 20110708

REACTIONS (8)
  - PAIN IN EXTREMITY [None]
  - JOINT SWELLING [None]
  - CELLULITIS [None]
  - GAIT DISTURBANCE [None]
  - RASH [None]
  - ARTHRALGIA [None]
  - NODULE [None]
  - BRONCHITIS [None]
